FAERS Safety Report 12334498 (Version 3)
Quarter: 2016Q2

REPORT INFORMATION
  Report Type: Spontaneous
  Country: US (occurrence: US)
  Receive Date: 20160504
  Receipt Date: 20160629
  Transmission Date: 20160815
  Serious: Yes (Other)
  Sender: FDA-Public Use
  Company Number: US-BAYER-2016-081270

PATIENT
  Age: 31 Year
  Sex: Female
  Weight: 80.74 kg

DRUGS (4)
  1. IBUPROFEN. [Concomitant]
     Active Substance: IBUPROFEN
     Indication: PAIN
     Dosage: 200 MG, QID, PRN
     Route: 048
  2. MIRENA [Suspect]
     Active Substance: LEVONORGESTREL
     Indication: CONTRACEPTION
     Dosage: 20 MCG/24HR, CONT
     Route: 015
     Dates: start: 20111030, end: 20160425
  3. ORTHO TRI CYCLEN [Suspect]
     Active Substance: ETHINYL ESTRADIOL\NORGESTIMATE
     Indication: ORAL CONTRACEPTION
     Dosage: 35 ?G, QD
     Route: 048
     Dates: start: 201604
  4. BETADINE [Concomitant]
     Active Substance: POVIDONE-IODINE

REACTIONS (10)
  - Product use issue [None]
  - Embedded device [Recovered/Resolved]
  - Procedural pain [Recovering/Resolving]
  - Complication of device removal [Recovered/Resolved]
  - Device difficult to use [Recovered/Resolved]
  - Post procedural haemorrhage [None]
  - Device breakage [None]
  - Post procedural discomfort [None]
  - Nausea [None]
  - Headache [None]

NARRATIVE: CASE EVENT DATE: 201604
